FAERS Safety Report 7994114-7 (Version None)
Quarter: 2011Q4

REPORT INFORMATION
  Report Type: 
  Country: None (occurrence: None)
  Receive Date: 20111123
  Receipt Date: 20111007
  Transmission Date: 20120403
  Serious: Yes (Life-Threatening)
  Sender: FDA-Public Use
  Company Number: 337126

PATIENT
  Age: 71 Year
  Sex: Female

DRUGS (4)
  1. VICTOZA [Suspect]
     Indication: TYPE 2 DIABETES MELLITUS
     Dosage: 1.5 MG, QD, SUBCUTANEOUS, 1.2 MG, QD, SUBCUTANEOUS
     Route: 058
     Dates: start: 20110701
  2. VICTOZA [Suspect]
     Indication: WEIGHT DECREASED
     Dosage: 1.5 MG, QD, SUBCUTANEOUS, 1.2 MG, QD, SUBCUTANEOUS
     Route: 058
     Dates: start: 20110701
  3. VICTOZA [Suspect]
     Indication: TYPE 2 DIABETES MELLITUS
     Dosage: 1.5 MG, QD, SUBCUTANEOUS, 1.2 MG, QD, SUBCUTANEOUS
     Route: 058
     Dates: start: 20100101
  4. VICTOZA [Suspect]
     Indication: WEIGHT DECREASED
     Dosage: 1.5 MG, QD, SUBCUTANEOUS, 1.2 MG, QD, SUBCUTANEOUS
     Route: 058
     Dates: start: 20100101

REACTIONS (3)
  - WEIGHT DECREASED [None]
  - DYSPEPSIA [None]
  - WEIGHT INCREASED [None]
